FAERS Safety Report 12374839 (Version 3)
Quarter: 2016Q2

REPORT INFORMATION
  Report Type: Spontaneous
  Country: IT (occurrence: IT)
  Receive Date: 20160517
  Receipt Date: 20160602
  Transmission Date: 20160815
  Serious: Yes (Hospitalization)
  Sender: FDA-Public Use
  Company Number: IT-SUN PHARMACEUTICAL INDUSTRIES LTD-2016RR-116629

PATIENT
  Age: 48 Year
  Sex: Female

DRUGS (3)
  1. RIVOTRIL [Suspect]
     Active Substance: CLONAZEPAM
     Indication: DRUG ABUSE
     Dosage: 20 DF TOTAL
     Route: 048
  2. ALPRAZOLAM. [Suspect]
     Active Substance: ALPRAZOLAM
     Indication: DRUG ABUSE
     Dosage: 20 DF TOTAL
     Route: 048
  3. ZARELIS 150 MG [Suspect]
     Active Substance: VENLAFAXINE HYDROCHLORIDE
     Indication: DRUG ABUSE
     Dosage: 10 DF TOTAL
     Route: 048

REACTIONS (2)
  - Drug abuse [Recovering/Resolving]
  - Intentional self-injury [Recovering/Resolving]

NARRATIVE: CASE EVENT DATE: 20160320
